FAERS Safety Report 13997091 (Version 1)
Quarter: 2017Q3

REPORT INFORMATION
  Report Type: Spontaneous
  Country: US (occurrence: US)
  Receive Date: 20170921
  Receipt Date: 20170921
  Transmission Date: 20171128
  Serious: Yes (Hospitalization, Other)
  Sender: FDA-Public Use
  Company Number: US-ZYDUS-016663

PATIENT
  Age: 58 Year
  Sex: Female

DRUGS (3)
  1. OXYCODONE [Suspect]
     Active Substance: OXYCODONE
     Indication: BACK PAIN
     Route: 065
  2. QUETIAPINE/QUETIAPINE FUMARATE [Concomitant]
     Indication: PRODUCT USED FOR UNKNOWN INDICATION
     Route: 065
  3. ALPRAZOLAM. [Concomitant]
     Active Substance: ALPRAZOLAM
     Indication: PRODUCT USED FOR UNKNOWN INDICATION
     Route: 065

REACTIONS (12)
  - Acute kidney injury [Unknown]
  - Loss of consciousness [Unknown]
  - Compartment syndrome [Unknown]
  - Hypoaesthesia [Unknown]
  - Hyperkalaemia [Unknown]
  - Muscular weakness [Unknown]
  - Pain in extremity [Unknown]
  - Rhabdomyolysis [Unknown]
  - Blister [Unknown]
  - Movement disorder [Unknown]
  - Intentional overdose [Unknown]
  - Tenderness [Unknown]
